FAERS Safety Report 5726979-3 (Version None)
Quarter: 2008Q2

REPORT INFORMATION
  Report Type: 
  Country: None (occurrence: None)
  Receive Date: 20080503
  Receipt Date: 20070612
  Transmission Date: 20081010
  Serious: Yes (Other)
  Sender: FDA-Public Use
  Company Number: JP-BRISTOL-MYERS SQUIBB COMPANY-13807979

PATIENT
  Age: 36 Year
  Sex: Male

DRUGS (20)
  1. STOCRIN TABS [Suspect]
     Indication: HIV INFECTION
     Dosage: ON 28-MAR-05 EFAVIRENZ INTERRUPTED.RESTARTED ON 13JUN05 AND DISCONTINUED ON 29AUG05
     Route: 048
     Dates: start: 20050216, end: 20050829
  2. REYATAZ [Suspect]
     Indication: HIV INFECTION
     Dosage: 400 MG 11-NOV-2005 CONT.
     Route: 048
     Dates: start: 20040116, end: 20040924
  3. VIDEX EC [Suspect]
     Indication: HIV INFECTION
     Route: 048
     Dates: start: 20050613, end: 20050827
  4. ZERIT [Suspect]
     Indication: HIV INFECTION
     Dosage: 60MG/D ON 11-NOV-05 TO 06-JUL-06. 15MG/D FRM 07-JUL-06 TO 14-JUL-06 AND 23-AUG-06 TILL CONTINUE
     Route: 048
     Dates: start: 20010806, end: 20020311
  5. VIREAD [Suspect]
     Indication: HIV INFECTION
     Route: 048
     Dates: start: 20020328, end: 20040113
  6. KALETRA [Suspect]
     Indication: HIV INFECTION
     Dosage: 1 DOSAGE FORM=1 CAP
     Route: 048
     Dates: start: 20011022, end: 20040924
  7. ZIAGEN [Suspect]
     Indication: HIV INFECTION
     Dosage: ALSO DOSED 22-OCT-2001 UNTIL 11-MAR-2002; 27-SEP-2004 TO 03-NOV-2004; 18-MAR-2005 UNTIL 02-JUN-2005.
     Route: 048
     Dates: start: 20011022, end: 20040924
  8. RETROVIR [Suspect]
     Indication: HIV INFECTION
     Dosage: 12-OCT-2005 TO 10-NOV-2005 400 MG BID.
     Route: 048
     Dates: start: 20050613, end: 20050829
  9. EPIVIR [Suspect]
     Indication: HIV INFECTION
     Dosage: 300MG/D-27-SEP-04 TO 03-NOV-04. 150MG/BID-12-OCT-05 TO 10-NOV-05. 50MG/D FROM 23-AUG-06
     Route: 048
     Dates: start: 20010806, end: 20011021
  10. VIRAMUNE [Suspect]
     Indication: HIV INFECTION
     Dosage: ALSO TAKEN ON 10-MAY-04 TILL 14-SEP-04
     Route: 048
     Dates: start: 20040116, end: 20040315
  11. EPZICOM [Concomitant]
     Dates: start: 20050216, end: 20050317
  12. URINORM [Concomitant]
     Dates: end: 20051225
  13. DIFLUCAN [Concomitant]
     Dates: end: 20050406
  14. LEXIVA [Concomitant]
     Dates: start: 20050216, end: 20050608
  15. LASIX [Concomitant]
     Dates: end: 20060201
  16. LOXONIN [Concomitant]
     Dates: end: 20060808
  17. VIRACEPT [Concomitant]
     Dosage: ALSO 12-OCT-2005 TO 10-NOV-2005.
     Dates: start: 20040927, end: 20041103
  18. NORVIR [Concomitant]
     Dates: start: 20050216, end: 20050608
  19. ALDACTONE [Concomitant]
     Dates: end: 20060207
  20. LOPEMIN [Concomitant]
     Route: 048
     Dates: end: 20050411

REACTIONS (3)
  - DYSPNOEA [None]
  - NEPHRITIS INTERSTITIAL [None]
  - RENAL FAILURE [None]
